FAERS Safety Report 7475768-0 (Version None)
Quarter: 2011Q2

REPORT INFORMATION
  Report Type: 
  Country: None (occurrence: None)
  Receive Date: 20110504
  Receipt Date: 20110418
  Transmission Date: 20111010
  Serious: Yes (Hospitalization)
  Sender: FDA-Public Use
  Company Number: 031390

PATIENT
  Sex: Female

DRUGS (2)
  1. KEPPRA [Suspect]
  2. LACOSAMIDE [Suspect]
     Dosage: INCREMENTS OF 50 MG

REACTIONS (4)
  - DRUG EFFECT DECREASED [None]
  - FATIGUE [None]
  - HYPOPHAGIA [None]
  - POST PROCEDURAL HAEMORRHAGE [None]
